FAERS Safety Report 8907970 (Version 2)
Quarter: 2012Q4

REPORT INFORMATION
  Report Type: 
  Country: CA (occurrence: CA)
  Receive Date: 20121114
  Receipt Date: 20121203
  Transmission Date: 20130627
  Serious: Yes (Other)
  Sender: FDA-Public Use
  Company Number: CA-AMGEN-CANSP2012061316

PATIENT
  Age: 84 Year
  Sex: Female
  Weight: 79 kg

DRUGS (15)
  1. TYLENOL /00020001/ [Concomitant]
  2. LORAZEPAM [Concomitant]
  3. VENTOLIN                           /00139501/ [Concomitant]
  4. FLOVENT [Concomitant]
  5. ARANESP [Suspect]
     Indication: ANAEMIA
     Dosage: 100 mug, UNK
     Route: 058
     Dates: start: 20090527
  6. IRBESARTAN [Suspect]
     Dosage: UNK
     Dates: end: 20120709
  7. CALCIUM + VITAMIN D                /01483701/ [Concomitant]
  8. ONE -ALPHA [Concomitant]
  9. RISEDRONATE [Concomitant]
  10. FUROSEMIDE [Concomitant]
  11. ROSUVASTATIN [Concomitant]
  12. DOXAZOSIN [Concomitant]
  13. CLONIDINE [Concomitant]
  14. DILTIAZEM [Concomitant]
  15. WARFARIN [Concomitant]

REACTIONS (2)
  - Anaemia [Not Recovered/Not Resolved]
  - Drug ineffective [Unknown]
